FAERS Safety Report 9828222 (Version 2)
Quarter: 2014Q1

REPORT INFORMATION
  Report Type: Spontaneous
  Country: US (occurrence: US)
  Receive Date: 20140117
  Receipt Date: 20140117
  Transmission Date: 20141002
  Serious: Yes (Other)
  Sender: FDA-Public Use
  Company Number: US-BMSGILMSD-2011-0038969

PATIENT
  Age: 60 Year
  Sex: Male
  Weight: 91.63 kg

DRUGS (8)
  1. ATRIPLA [Suspect]
     Indication: HIV INFECTION
     Route: 048
     Dates: start: 20060801, end: 20110223
  2. METFORMIN [Concomitant]
     Indication: DIABETES MELLITUS
  3. ENALAPRIL [Concomitant]
     Indication: MICROALBUMINURIA
  4. AMBIEN [Concomitant]
     Indication: INSOMNIA
  5. OXYCODONE [Concomitant]
     Indication: PAIN
     Route: 048
  6. OXYCONTIN [Concomitant]
     Indication: PAIN
     Route: 048
  7. JANUVIA [Concomitant]
     Indication: DIABETES MELLITUS
     Route: 048
     Dates: start: 20110308
  8. CALCIUM [Concomitant]
     Indication: NUTRITIONAL SUPPLEMENTATION
     Dates: start: 20110308

REACTIONS (3)
  - Renal failure [Not Recovered/Not Resolved]
  - Renal tubular necrosis [Not Recovered/Not Resolved]
  - Blood creatinine increased [Recovering/Resolving]
